FAERS Safety Report 9782587 (Version 2)
Quarter: 2013Q4

REPORT INFORMATION
  Report Type: Report from Study
  Country: MX (occurrence: MX)
  Receive Date: 20131226
  Receipt Date: 20131226
  Transmission Date: 20140711
  Serious: Yes (Death)
  Sender: FDA-Public Use
  Company Number: PHHY2012MX064548

PATIENT
  Age: 78 Year
  Sex: Female

DRUGS (1)
  1. ACLASTA [Suspect]
     Indication: OSTEOPOROSIS
     Dosage: 5 MG, PER DAY
     Route: 048
     Dates: start: 20120629

REACTIONS (3)
  - Death [Fatal]
  - Hypertension [Not Recovered/Not Resolved]
  - Incorrect route of drug administration [Unknown]
